FAERS Safety Report 7170997-8 (Version None)
Quarter: 2010Q4

REPORT INFORMATION
  Report Type: 
  Country: None (occurrence: None)
  Receive Date: 20101217
  Receipt Date: 20101204
  Transmission Date: 20110411
  Serious: Yes (Hospitalization)
  Sender: FDA-Public Use
  Company Number: US-ELI_LILLY_AND_COMPANY-US201012001182

PATIENT
  Sex: Male

DRUGS (33)
  1. GEMCITABINE HCL [Suspect]
     Indication: PANCREATIC CARCINOMA
     Dosage: 1000 MG/M2, UNKNOWN
     Route: 065
     Dates: start: 20100703
  2. PACLITAXEL [Suspect]
     Indication: PANCREATIC CARCINOMA
     Dosage: 125 MG/M2, WEEKLY (1/W)
     Route: 065
     Dates: start: 20100703
  3. KEFLEX [Concomitant]
     Indication: PNEUMONIA
     Dosage: 500 MG, UNK
     Route: 048
     Dates: start: 20100807, end: 20100817
  4. DILAUDID [Concomitant]
     Dosage: 2 MG, AS NEEDED
     Route: 048
     Dates: start: 20100803, end: 20100805
  5. POTASSIUM CHLORIDE [Concomitant]
     Indication: MINERAL SUPPLEMENTATION
  6. DECADRON [Concomitant]
     Indication: ANTIEMETIC SUPPORTIVE CARE
     Dosage: 10 MG, UNK
     Dates: start: 20100730
  7. ALOXI [Concomitant]
     Indication: ANTIEMETIC SUPPORTIVE CARE
     Dosage: 0.25 MG, UNK
     Route: 042
     Dates: start: 20100730
  8. NAPROXEN [Concomitant]
     Indication: ABDOMINAL PAIN
     Dosage: 250 MG, UNK
     Route: 048
     Dates: start: 20100804, end: 20100805
  9. MORPHINE [Concomitant]
     Indication: ABDOMINAL PAIN
     Route: 042
     Dates: start: 20100802, end: 20100804
  10. HYDROMORPHONE HCL [Concomitant]
     Indication: ABDOMINAL PAIN
     Dosage: 0.5 MG, UNK
     Route: 042
     Dates: start: 20100802, end: 20100802
  11. TIOTROPIUM [Concomitant]
     Indication: CHRONIC OBSTRUCTIVE PULMONARY DISEASE
     Dosage: 1 D/F, DAILY (1/D)
     Dates: start: 20100803, end: 20100811
  12. BENICAR [Concomitant]
     Indication: HYPERTENSION
     Route: 048
     Dates: start: 20100720
  13. FENTANYL [Concomitant]
     Indication: PAIN
     Dosage: 75 UG, UNK
     Dates: start: 20100720, end: 20100730
  14. FENTANYL [Concomitant]
     Dosage: 100 UG, EVERY 72 HOURS
     Dates: start: 20100730, end: 20100802
  15. FENTANYL [Concomitant]
     Dosage: 125 UG, EVERY 72 HOURS
     Route: 061
     Dates: start: 20100802
  16. K-DUR [Concomitant]
     Indication: HYPERTENSION
     Dates: start: 20100720
  17. LEXAPRO [Concomitant]
     Indication: DEPRESSION
     Dosage: 10 MG, UNK
     Route: 048
     Dates: start: 20100720, end: 20100806
  18. LEXAPRO [Concomitant]
     Dosage: 20 MG, UNK
     Route: 050
     Dates: start: 20100806
  19. LOVENOX [Concomitant]
     Indication: FACTOR II DEFICIENCY
     Dosage: 100 MG, UNK
     Route: 058
     Dates: start: 20100720
  20. NEXIUM [Concomitant]
     Indication: DYSPEPSIA
     Dosage: 40 MG, UNK
     Route: 048
     Dates: start: 20100720
  21. NORVASC [Concomitant]
     Indication: HYPERTENSION
     Dosage: 10 MG, UNK
     Route: 048
     Dates: start: 20100720
  22. OXYCODONE [Concomitant]
     Indication: PAIN
     Dosage: 5 MG, EVERY 6 HRS
     Route: 048
     Dates: start: 20100720, end: 20100806
  23. OXYCODONE [Concomitant]
     Dates: start: 20100810
  24. PERVENTIL [Concomitant]
     Indication: EMPHYSEMA
     Route: 055
     Dates: start: 20100720
  25. GRANISETRON HCL [Concomitant]
     Indication: NAUSEA
     Dosage: 3.1 MG, UNK
     Route: 062
     Dates: start: 20100730
  26. COMPAZINE [Concomitant]
     Indication: NAUSEA
     Dosage: 10 MG, AS NEEDED
     Route: 048
     Dates: start: 20100730
  27. CIPRO [Concomitant]
     Indication: WHITE BLOOD CELL COUNT INCREASED
     Dosage: 500 MG, UNK
     Route: 048
     Dates: start: 20100730
  28. SENNA [Concomitant]
     Dosage: 2 D/F, 2/D
     Route: 048
     Dates: start: 20100805
  29. ALBUTEROL [Concomitant]
     Indication: DYSPNOEA
     Dosage: 0.5 MG, UNK
     Route: 055
     Dates: start: 20100805, end: 20100805
  30. MIRALAX [Concomitant]
     Indication: CONSTIPATION
     Dosage: 2 D/F, UNK
     Route: 048
     Dates: start: 20100805
  31. OMEPRAZOLE [Concomitant]
     Indication: DEPRESSION
     Dosage: 40 MG, UNK
     Route: 048
     Dates: start: 20100806
  32. COLACE [Concomitant]
     Dosage: 200 MG, UNK
     Dates: start: 20100805
  33. ANCEF [Concomitant]
     Indication: PNEUMONIA
     Dosage: 1 G, UNK
     Route: 042
     Dates: start: 20100807, end: 20100811

REACTIONS (1)
  - INFECTION [None]
